FAERS Safety Report 11520315 (Version 1)
Quarter: 2015Q3

REPORT INFORMATION
  Report Type: Spontaneous
  Country: US (occurrence: US)
  Receive Date: 20150918
  Receipt Date: 20150918
  Transmission Date: 20151125
  Serious: No
  Sender: FDA-Public Use
  Company Number: US-RB-076082-15

PATIENT

DRUGS (2)
  1. KLONAPIN [Concomitant]
     Indication: PRODUCT USED FOR UNKNOWN INDICATION
     Dosage: DOSE UNK, UNITS UNK, FREQUENCY UNK
     Route: 065
  2. MUCINEX [Suspect]
     Active Substance: GUAIFENESIN
     Indication: PRODUCT USED FOR UNKNOWN INDICATION
     Dosage: 600MG. ,QD
     Route: 065
     Dates: start: 20150120

REACTIONS (3)
  - Respiratory rate decreased [Unknown]
  - Incorrect drug administration duration [Unknown]
  - Expired product administered [Unknown]

NARRATIVE: CASE EVENT DATE: 20150120
